FAERS Safety Report 6107803-6 (Version None)
Quarter: 2009Q1

REPORT INFORMATION
  Report Type: 
  Country: None (occurrence: None)
  Receive Date: 20090309
  Receipt Date: 20090225
  Transmission Date: 20090719
  Serious: Yes (Death)
  Sender: FDA-Public Use
  Company Number: B0563012A

PATIENT
  Age: 50 Year
  Sex: Male

DRUGS (5)
  1. MELPHALAN [Suspect]
     Indication: MULTIPLE MYELOMA
     Dosage: 200MGM2 PER DAY
  2. CYCLOPHOSPHAMIDE [Suspect]
  3. DEXAMETHASONE [Concomitant]
  4. NEUPOGEN [Concomitant]
  5. THALIDOMIDE [Concomitant]

REACTIONS (14)
  - ABDOMINAL PAIN [None]
  - ABSCESS [None]
  - CEREBRAL HAEMORRHAGE [None]
  - CHOLECYSTITIS [None]
  - CONVULSION [None]
  - DIARRHOEA [None]
  - EOSINOPHILIA [None]
  - GRAFT VERSUS HOST DISEASE [None]
  - MUCOSAL INFLAMMATION [None]
  - NAUSEA [None]
  - NERVOUS SYSTEM DISORDER [None]
  - RASH ERYTHEMATOUS [None]
  - SKIN EXFOLIATION [None]
  - VOMITING [None]
